FAERS Safety Report 7701762-8 (Version None)
Quarter: 2011Q3

REPORT INFORMATION
  Report Type: 
  Country: None (occurrence: None)
  Receive Date: 20110822
  Receipt Date: 20110812
  Transmission Date: 20111222
  Serious: Yes (Hospitalization, Other)
  Sender: FDA-Public Use
  Company Number: US-BAYER-2011-023337

PATIENT
  Age: 35 Year
  Sex: Female
  Weight: 73 kg

DRUGS (9)
  1. SYNTHROID [Concomitant]
  2. DOXYCYCLINE [Concomitant]
  3. GONAL-F [Concomitant]
  4. YASMIN [Suspect]
     Indication: PRODUCT USED FOR UNKNOWN INDICATION
     Dosage: UNK
     Route: 048
     Dates: start: 20040601, end: 20040701
  5. PAXIL [Concomitant]
  6. VALIUM [Concomitant]
  7. PROGESTERONE [Concomitant]
  8. PRECARE [Concomitant]
  9. LUPRON [Concomitant]

REACTIONS (3)
  - MENTAL DISORDER [None]
  - PULMONARY EMBOLISM [None]
  - ANXIETY [None]
